FAERS Safety Report 22611170 (Version 1)
Quarter: 2023Q2

REPORT INFORMATION
  Report Type: Spontaneous
  Country: CN (occurrence: None)
  Receive Date: 20230616
  Receipt Date: 20230616
  Transmission Date: 20230721
  Serious: Yes (Other)
  Sender: FDA-Public Use
  Company Number: 2023A135340

PATIENT

DRUGS (2)
  1. TICAGRELOR [Suspect]
     Active Substance: TICAGRELOR
     Route: 048
  2. TICAGRELOR [Concomitant]
     Active Substance: TICAGRELOR

REACTIONS (5)
  - Acute coronary syndrome [Recovering/Resolving]
  - Hepatic fibrosis [Recovering/Resolving]
  - Alcoholic liver disease [Recovering/Resolving]
  - Gastrointestinal haemorrhage [Recovering/Resolving]
  - Transaminases decreased [Recovering/Resolving]

NARRATIVE: CASE EVENT DATE: 20230607
